FAERS Safety Report 15160553 (Version 1)
Quarter: 2018Q3

REPORT INFORMATION
  Report Type: Spontaneous
  Country: US (occurrence: US)
  Receive Date: 20180718
  Receipt Date: 20180718
  Transmission Date: 20181010
  Serious: No
  Sender: FDA-Public Use
  Company Number: US-BAYER-2018-130455

PATIENT
  Sex: Female

DRUGS (3)
  1. ALEVE [Suspect]
     Active Substance: NAPROXEN SODIUM
     Indication: GOUT
     Dosage: 1 DF, UNK
     Route: 048
  2. ALEVE [Suspect]
     Active Substance: NAPROXEN SODIUM
     Indication: GOUT
  3. ALEVE [Suspect]
     Active Substance: NAPROXEN SODIUM
     Indication: GOUT
     Dosage: 1 DF, UNK
     Route: 048
     Dates: start: 2018

REACTIONS (4)
  - Expired product administered [Unknown]
  - Drug effective for unapproved indication [None]
  - Drug ineffective [Unknown]
  - Drug ineffective for unapproved indication [Unknown]
